FAERS Safety Report 14753934 (Version 1)
Quarter: 2018Q2

REPORT INFORMATION
  Report Type: Spontaneous
  Country: US (occurrence: US)
  Receive Date: 20180412
  Receipt Date: 20180412
  Transmission Date: 20180711
  Serious: Yes (Other)
  Sender: FDA-Public Use
  Company Number: PHHY2018US056788

PATIENT
  Age: 60 Year
  Sex: Male

DRUGS (3)
  1. CEFTAZIDIME. [Concomitant]
     Active Substance: CEFTAZIDIME
     Indication: PRODUCT USED FOR UNKNOWN INDICATION
     Route: 065
  2. VANCOMYCIN [Suspect]
     Active Substance: VANCOMYCIN
     Dosage: 1 MG, UNK
     Route: 031
  3. VANCOMYCIN [Suspect]
     Active Substance: VANCOMYCIN
     Indication: PRODUCT USED FOR UNKNOWN INDICATION
     Dosage: 1 MG/0.1 ML
     Route: 065

REACTIONS (8)
  - Ocular discomfort [Unknown]
  - Vitreous disorder [Unknown]
  - Visual impairment [Unknown]
  - Visual acuity reduced [Unknown]
  - Anterior chamber disorder [Unknown]
  - Retinal vasculitis [Unknown]
  - Corneal oedema [Unknown]
  - Incorrect route of drug administration [Unknown]
